FAERS Safety Report 25507758 (Version 1)
Quarter: 2025Q3

REPORT INFORMATION
  Report Type: Spontaneous
  Country: EU (occurrence: EU)
  Receive Date: 20250703
  Receipt Date: 20250703
  Transmission Date: 20251021
  Serious: Yes (Hospitalization, Other)
  Sender: BOEHRINGER INGELHEIM
  Company Number: None

PATIENT
  Sex: Female

DRUGS (1)
  1. JARDIANCE [Suspect]
     Active Substance: EMPAGLIFLOZIN
     Indication: Cardiac failure
     Dates: start: 202409, end: 20250625

REACTIONS (5)
  - Fournier^s gangrene [Not Recovered/Not Resolved]
  - Perineal erythema [Not Recovered/Not Resolved]
  - Perineal swelling [Not Recovered/Not Resolved]
  - Perineal pain [Not Recovered/Not Resolved]
  - Pruritus genital [Not Recovered/Not Resolved]
